FAERS Safety Report 10245049 (Version 1)
Quarter: 2014Q2

REPORT INFORMATION
  Report Type: Spontaneous
  Country: US (occurrence: US)
  Receive Date: 20140618
  Receipt Date: 20140618
  Transmission Date: 20141212
  Serious: No
  Sender: FDA-Public Use
  Company Number: US-GALDERMA-US14001238

PATIENT
  Age: 46 Year
  Sex: Female

DRUGS (4)
  1. MIRVASO (BRIMONIDINE) TOPICAL GEL, 0.33% [Suspect]
     Indication: ROSACEA
     Dosage: 0.33%
     Route: 061
     Dates: start: 20140320, end: 20140330
  2. VITAMIN D [Concomitant]
     Dosage: 1000 IU
     Route: 048
  3. CLINIQUE BB CREAM [Concomitant]
     Route: 061
  4. LOSARTAN [Concomitant]
     Dosage: 50 MG
     Route: 048

REACTIONS (3)
  - Feeling hot [Recovered/Resolved]
  - Skin discomfort [Recovered/Resolved]
  - Flushing [Recovered/Resolved]
